FAERS Safety Report 20299338 (Version 1)
Quarter: 2022Q1

REPORT INFORMATION
  Report Type: Spontaneous
  Country: US (occurrence: None)
  Receive Date: 20220104
  Receipt Date: 20220104
  Transmission Date: 20220423
  Serious: No
  Sender: FDA-Public Use
  Company Number: None

PATIENT
  Age: 76 Year
  Sex: Male
  Weight: 97.2 kg

DRUGS (1)
  1. INLYTA [Suspect]
     Active Substance: AXITINIB
     Indication: Renal cancer
     Dosage: FREQUENCY : TWICE A DAY;?
     Route: 048
     Dates: start: 20210306, end: 20220104

REACTIONS (4)
  - Urinary tract infection [None]
  - Neuropathy peripheral [None]
  - Gait disturbance [None]
  - Condition aggravated [None]

NARRATIVE: CASE EVENT DATE: 20220104
